FAERS Safety Report 7369192-9 (Version None)
Quarter: 2011Q1

REPORT INFORMATION
  Report Type: 
  Country: None (occurrence: None)
  Receive Date: 20110323
  Receipt Date: 20110311
  Transmission Date: 20110831
  Serious: Yes (Other)
  Sender: FDA-Public Use
  Company Number: NL-ROCHE-760453

PATIENT
  Sex: Male

DRUGS (7)
  1. MIRCERA [Suspect]
     Route: 042
     Dates: start: 20101103, end: 20110202
  2. NEORECORMON [Concomitant]
     Route: 058
     Dates: start: 20090619, end: 20100115
  3. MIRCERA [Suspect]
     Route: 042
     Dates: start: 20100906, end: 20100927
  4. NEORECORMON [Concomitant]
     Route: 058
     Dates: start: 20100628, end: 20100906
  5. MIRCERA [Suspect]
     Dosage: DATE OF LAST ADMINISTRATION: 23 FEBRUARY 2011
     Route: 042
     Dates: start: 20110202, end: 20110223
  6. MIRCERA [Suspect]
     Route: 042
     Dates: start: 20100927, end: 20101103
  7. NEORECORMON [Concomitant]
     Route: 058
     Dates: start: 20100115, end: 20100628

REACTIONS (1)
  - APLASIA PURE RED CELL [None]
